FAERS Safety Report 17656899 (Version 2)
Quarter: 2020Q2

REPORT INFORMATION
  Report Type: Spontaneous
  Country: HR (occurrence: HR)
  Receive Date: 20200410
  Receipt Date: 20200417
  Transmission Date: 20200713
  Serious: Yes (Life-Threatening, Other)
  Sender: FDA-Public Use
  Company Number: HR-B.I. PHARMACEUTICALS,INC./RIDGEFIELD-2020-BI-018768

PATIENT
  Age: 42 Year
  Sex: Female

DRUGS (7)
  1. INSULIN ASPART [Concomitant]
     Active Substance: INSULIN ASPART
     Indication: PRODUCT USED FOR UNKNOWN INDICATION
     Dosage: 4-6 IU 3X DAILY BEFORE MEALS
     Route: 058
  2. ALOGLIPTIN BENZOATE;METFORMIN HYDROCHLORIDE [Concomitant]
     Indication: PRODUCT USED FOR UNKNOWN INDICATION
     Route: 065
  3. INSULIN HUMAN [Concomitant]
     Active Substance: INSULIN HUMAN
     Indication: BLOOD GLUCOSE ABNORMAL
     Route: 065
  4. SYNJARDY [Suspect]
     Active Substance: EMPAGLIFLOZIN\METFORMIN HYDROCHLORIDE
     Indication: TYPE 2 DIABETES MELLITUS
     Route: 065
  5. PERINDOPRIL [Concomitant]
     Active Substance: PERINDOPRIL
     Indication: PRODUCT USED FOR UNKNOWN INDICATION
     Route: 065
  6. INSULIN ASPART [Concomitant]
     Active Substance: INSULIN ASPART
     Dosage: 10 IU PM DOSE
     Route: 058
  7. INSULIN HUMAN [Concomitant]
     Active Substance: INSULIN HUMAN
     Route: 065

REACTIONS (7)
  - Euglycaemic diabetic ketoacidosis [Recovered/Resolved]
  - Procedural vomiting [Recovered/Resolved]
  - Acidosis [Recovered/Resolved]
  - Post procedural complication [Recovered/Resolved]
  - Somnolence [Recovered/Resolved]
  - Bradyphrenia [Recovered/Resolved]
  - Blood bicarbonate decreased [Recovered/Resolved]
